FAERS Safety Report 21652402 (Version 1)
Quarter: 2022Q4

REPORT INFORMATION
  Report Type: Spontaneous
  Country: US (occurrence: None)
  Receive Date: 20221123
  Receipt Date: 20221123
  Transmission Date: 20230113
  Serious: Yes (Death)
  Sender: FDA-Public Use
  Company Number: None

PATIENT
  Sex: Female

DRUGS (1)
  1. CAPECITABINE [Suspect]
     Active Substance: CAPECITABINE
     Indication: Pancreatic carcinoma
     Dosage: TAKE 3 TABLETS BY MOUTH TWICE DAILY MONDAY THROUGH FRIDAY DURING RADIATION.
     Route: 048
     Dates: start: 20211001

REACTIONS (1)
  - Death [None]
